FAERS Safety Report 10906457 (Version 2)
Quarter: 2015Q1

REPORT INFORMATION
  Report Type: Spontaneous
  Country: JP (occurrence: JP)
  Receive Date: 20150312
  Receipt Date: 20150331
  Transmission Date: 20150721
  Serious: Yes (Other)
  Sender: FDA-Public Use
  Company Number: JP-UCBSA-2014018085

PATIENT
  Age: 32 Year
  Sex: Female
  Weight: 52 kg

DRUGS (8)
  1. MOHRUS [Concomitant]
     Active Substance: KETOPROFEN
     Indication: PRODUCT USED FOR UNKNOWN INDICATION
     Dosage: TAPE
     Route: 062
     Dates: start: 20141020
  2. FERROUS SODIUM CITRATE [Concomitant]
     Dosage: 50 MGX 2/DAY
     Route: 048
     Dates: start: 20141224, end: 20141230
  3. PREDONINE [Concomitant]
     Active Substance: PREDNISOLONE\PREDNISOLONE ACETATE\PREDNISOLONE SODIUM SUCCINATE
     Indication: PRODUCT USED FOR UNKNOWN INDICATION
     Dosage: 5 MG
     Route: 048
  4. CIMZIA [Suspect]
     Active Substance: CERTOLIZUMAB PEGOL
     Indication: RHEUMATOID ARTHRITIS
     Dosage: 200 MG, EV 2 WEEKS(QOW)
     Route: 058
     Dates: end: 20141215
  5. PROMAC [Concomitant]
     Active Substance: NITROFURANTOIN
     Indication: PRODUCT USED FOR UNKNOWN INDICATION
     Dosage: 75 MG X 2/DAY
     Route: 048
  6. FERROUS SODIUM CITRATE [Concomitant]
     Indication: ANAEMIA OF PREGNANCY
     Dosage: 50 MGX 2/DAY
     Route: 048
     Dates: start: 20141117, end: 20141123
  7. UTEMERIN [Concomitant]
     Active Substance: RITODRINE
     Indication: THREATENED LABOUR
     Dosage: 5 MG, ONCE DAILY (QD)
     Route: 048
     Dates: start: 20141201, end: 201501
  8. ALFAROL [Concomitant]
     Active Substance: ALFACALCIDOL
     Indication: PRODUCT USED FOR UNKNOWN INDICATION
     Dosage: 0.5 ?G
     Route: 048

REACTIONS (4)
  - Threatened labour [Recovering/Resolving]
  - Rash [Recovering/Resolving]
  - Anaemia of pregnancy [Recovering/Resolving]
  - Pregnancy [Unknown]

NARRATIVE: CASE EVENT DATE: 20140422
